FAERS Safety Report 7722147-4 (Version None)
Quarter: 2011Q3

REPORT INFORMATION
  Report Type: 
  Country: None (occurrence: None)
  Receive Date: 20110825
  Receipt Date: 20110815
  Transmission Date: 20111222
  Serious: Yes (Hospitalization, Other)
  Sender: FDA-Public Use
  Company Number: DSU-2011-06028

PATIENT
  Age: 41 Year
  Sex: Male
  Weight: 88 kg

DRUGS (1)
  1. OLMETEC PLUS (HYDROCHLOROTHIAZIDE, OLMESARTAN MEDOXOMIL) (TABLET) (HYD [Suspect]
     Indication: PRODUCT USED FOR UNKNOWN INDICATION
     Dosage: 40/25MG (QD),PER ORAL
     Route: 048
     Dates: start: 20100131, end: 20100206

REACTIONS (20)
  - TACHYCARDIA [None]
  - HYPERHIDROSIS [None]
  - CATECHOLAMINES URINE INCREASED [None]
  - FLUID RETENTION [None]
  - HYPERTENSION [None]
  - DIARRHOEA [None]
  - WEIGHT INCREASED [None]
  - BLOOD PRESSURE INADEQUATELY CONTROLLED [None]
  - OEDEMA PERIPHERAL [None]
  - COUGH [None]
  - URINARY RETENTION [None]
  - HORMONE LEVEL ABNORMAL [None]
  - HYPOTENSION [None]
  - JOINT SWELLING [None]
  - NOREPINEPHRINE INCREASED [None]
  - SYNCOPE [None]
  - FATIGUE [None]
  - BLOOD MAGNESIUM DECREASED [None]
  - GLOMERULAR FILTRATION RATE DECREASED [None]
  - BLOOD CREATININE INCREASED [None]
